FAERS Safety Report 9219483 (Version 2)
Quarter: 2013Q2

REPORT INFORMATION
  Report Type: Spontaneous
  Country: US (occurrence: US)
  Receive Date: 20130409
  Receipt Date: 20130506
  Transmission Date: 20140414
  Serious: No
  Sender: FDA-Public Use
  Company Number: US-PFIZER INC-2013105184

PATIENT
  Age: 85 Year
  Sex: Female

DRUGS (2)
  1. VFEND [Suspect]
     Indication: PNEUMONIA FUNGAL
     Dosage: 200 MG, 2X/DAY
     Dates: start: 20130211
  2. VFEND [Suspect]
     Indication: TORTICOLLIS
     Dosage: UNK
     Route: 048

REACTIONS (2)
  - Local swelling [Recovered/Resolved]
  - Alopecia [Recovered/Resolved]
